FAERS Safety Report 7342897-1 (Version None)
Quarter: 2011Q1

REPORT INFORMATION
  Report Type: 
  Country: None (occurrence: None)
  Receive Date: 20110310
  Receipt Date: 20110301
  Transmission Date: 20110831
  Serious: Yes (Other)
  Sender: FDA-Public Use
  Company Number: JP-BAYER-201012313BYL

PATIENT
  Sex: Male
  Weight: 63 kg

DRUGS (4)
  1. NEXAVAR [Suspect]
     Route: 048
     Dates: start: 20090825, end: 20090831
  2. NEXAVAR [Suspect]
     Indication: HEPATIC NEOPLASM MALIGNANT
     Route: 048
     Dates: start: 20090730, end: 20090810
  3. NEXAVAR [Suspect]
     Dosage: 400 MG (DAILY DOSE), , ORAL
     Route: 048
     Dates: start: 20090811, end: 20090824
  4. LAMIVUDINE(PEPFAR) [Concomitant]
     Dosage: 100 MG, QD
     Route: 048
     Dates: start: 20071217

REACTIONS (4)
  - GASTRIC ULCER [None]
  - DECREASED APPETITE [None]
  - WEIGHT DECREASED [None]
  - ALOPECIA [None]
